FAERS Safety Report 16881648 (Version 1)
Quarter: 2019Q4

REPORT INFORMATION
  Report Type: Spontaneous
  Country: US (occurrence: US)
  Receive Date: 20190808
  Receipt Date: 20190808
  Transmission Date: 20200122
  Serious: Yes (Hospitalization)
  Sender: FDA-Public Use
  Company Number: None

PATIENT
  Age: 48 Year
  Sex: Male

DRUGS (1)
  1. 4 MIDABLE MASS [Suspect]
     Active Substance: DIETARY SUPPLEMENT
     Indication: MUSCLE MASS
     Route: 048
     Dates: start: 20190615, end: 20190717

REACTIONS (2)
  - Jaundice [None]
  - Drug-induced liver injury [None]

NARRATIVE: CASE EVENT DATE: 20190724
